FAERS Safety Report 5223822-6 (Version None)
Quarter: 2007Q1

REPORT INFORMATION
  Report Type: 
  Country: None (occurrence: None)
  Receive Date: 20070125
  Receipt Date: 20070112
  Transmission Date: 20070707
  Serious: Yes (Hospitalization)
  Sender: FDA-Public Use
  Company Number: HQWYE257510MAY06

PATIENT
  Age: 56 Year
  Sex: Male

DRUGS (5)
  1. PANTOPRAZOLE SODIUM [Suspect]
     Dosage: 20 MG 1X PER 1 DAY ORAL
     Route: 048
     Dates: start: 20060117, end: 20060215
  2. SULFASALAZINE [Suspect]
     Dosage: DOSE INCREASED UP TO 2000 MG DAILY ORAL; 500 MG 1X PER 1 DY ORFAL
     Route: 048
     Dates: start: 20060117, end: 20060123
  3. SULFASALAZINE [Suspect]
     Dosage: DOSE INCREASED UP TO 2000 MG DAILY ORAL; 500 MG 1X PER 1 DY ORFAL
     Route: 048
     Dates: start: 20060124, end: 20060215
  4. VOLTAREN [Suspect]
     Dosage: 1 DOSAGE FORM 1X PER 1 DAY ORAL
     Route: 048
     Dates: start: 20060117, end: 20060215
  5. HYDROCORTANCYL (PREDNISOLONE) [Concomitant]

REACTIONS (20)
  - ALANINE AMINOTRANSFERASE NORMAL [None]
  - ASPARTATE AMINOTRANSFERASE INCREASED [None]
  - BLOOD ALBUMIN DECREASED [None]
  - BLOOD BILIRUBIN INCREASED [None]
  - CONDITION AGGRAVATED [None]
  - DERMATITIS EXFOLIATIVE [None]
  - DRUG RASH WITH EOSINOPHILIA AND SYSTEMIC SYMPTOMS [None]
  - EOSINOPHILIA [None]
  - FACE OEDEMA [None]
  - GAMMA-GLUTAMYLTRANSFERASE INCREASED [None]
  - GRANULOCYTOSIS [None]
  - HEPATITIS [None]
  - HERPES VIRUS INFECTION [None]
  - IMMUNOGLOBULINS DECREASED [None]
  - INFLAMMATION [None]
  - LYMPHADENOPATHY [None]
  - MONONUCLEOSIS SYNDROME [None]
  - PROTEIN TOTAL DECREASED [None]
  - PYREXIA [None]
  - TOXIC SKIN ERUPTION [None]
